FAERS Safety Report 4849692-3 (Version None)
Quarter: 2005Q4

REPORT INFORMATION
  Report Type: 
  Country: None (occurrence: None)
  Receive Date: 20051115
  Receipt Date: 20051010
  Transmission Date: 20060501
  Serious: No
  Sender: FDA-Public Use
  Company Number: S05-USA-04606-01

PATIENT
  Age: 76 Year
  Sex: Male

DRUGS (7)
  1. NAMENDA [Suspect]
     Indication: DEMENTIA ALZHEIMER'S TYPE
     Dosage: 5 MG QD PO
     Route: 048
     Dates: start: 20050920
  2. GABAPENTIN [Concomitant]
  3. CYMBALTA [Concomitant]
  4. SIMVASTATIN [Concomitant]
  5. RAZADYNE (GALANTAMINE) [Concomitant]
  6. VITAMIN B12 [Concomitant]
  7. MULTI-VITAMIN [Concomitant]

REACTIONS (2)
  - HEADACHE [None]
  - NAUSEA [None]
